FAERS Safety Report 12487352 (Version 2)
Quarter: 2016Q2

REPORT INFORMATION
  Report Type: Spontaneous
  Country: FR (occurrence: FR)
  Receive Date: 20160622
  Receipt Date: 20160628
  Transmission Date: 20160815
  Serious: Yes (Other)
  Sender: FDA-Public Use
  Company Number: FR-ASTRAZENECA-2016SE60577

PATIENT
  Age: 489 Month
  Sex: Female

DRUGS (8)
  1. DIFFUK [Concomitant]
     Active Substance: POTASSIUM CHLORIDE
  2. MESTINON [Concomitant]
     Active Substance: PYRIDOSTIGMINE BROMIDE
     Indication: MUSCULAR WEAKNESS
  3. INEXIUM [Suspect]
     Active Substance: ESOMEPRAZOLE
     Indication: PROPHYLAXIS
     Route: 048
     Dates: start: 201602, end: 201603
  4. INEXIUM [Suspect]
     Active Substance: ESOMEPRAZOLE
     Indication: GASTRIC DISORDER
     Route: 048
     Dates: start: 201602, end: 201603
  5. PHOSPHONEUROS [Concomitant]
     Active Substance: CALCIUM PHOSPHATE, DIBASIC, ANHYDROUS\MAGNESIUM GLYCEROPHOSPHATE\PHOSPHORIC ACID\SODIUM PHOSPHATE, DIBASIC
  6. ENERGYPOWER [Concomitant]
  7. CALCIDOSE [Concomitant]
     Active Substance: CALCIUM CARBONATE
  8. UVEDOSE [Concomitant]
     Active Substance: CHOLECALCIFEROL

REACTIONS (5)
  - Hyponatraemia [Unknown]
  - Product use issue [Recovered/Resolved]
  - Off label use [Recovered/Resolved]
  - Hypophosphataemia [Recovered/Resolved]
  - Hypokalaemia [Unknown]

NARRATIVE: CASE EVENT DATE: 201602
